FAERS Safety Report 4411355-6 (Version None)
Quarter: 2004Q3

REPORT INFORMATION
  Report Type: 
  Country: None (occurrence: None)
  Receive Date: 20040729
  Receipt Date: 20040726
  Transmission Date: 20050211
  Serious: Yes (Hospitalization)
  Sender: FDA-Public Use
  Company Number: US-MERCK-0407USA02302

PATIENT
  Age: 80 Year
  Sex: Female

DRUGS (10)
  1. DIGOXIN [Concomitant]
     Route: 065
  2. FUROSEMIDE [Concomitant]
     Route: 065
  3. INSULIN [Concomitant]
     Route: 065
  4. IMDUR [Concomitant]
     Route: 065
  5. GLUCOPHAGE [Concomitant]
     Route: 065
  6. TOPROL-XL [Concomitant]
     Route: 065
  7. PROTONIX [Concomitant]
     Route: 065
  8. POTASSIUM (UNSPECIFIED) [Concomitant]
     Route: 065
  9. ZOCOR [Suspect]
     Indication: BLOOD CHOLESTEROL INCREASED
     Route: 048
     Dates: start: 20000101
  10. BETAPACE [Concomitant]
     Route: 065

REACTIONS (4)
  - GASTROINTESTINAL DISORDER [None]
  - LIVER DISORDER [None]
  - PANCREATIC DISORDER [None]
  - RETINAL DETACHMENT [None]
